FAERS Safety Report 5324205-0 (Version None)
Quarter: 2007Q2

REPORT INFORMATION
  Report Type: 
  Country: None (occurrence: None)
  Receive Date: 20070514
  Receipt Date: 20070427
  Transmission Date: 20071010
  Serious: Yes (Disabling)
  Sender: FDA-Public Use
  Company Number: FR-ROCHE-496073

PATIENT
  Age: 44 Year
  Sex: Female
  Weight: 75 kg

DRUGS (7)
  1. ENFUVIRTIDE [Suspect]
     Indication: HIV INFECTION
     Route: 058
     Dates: start: 20060408, end: 20061117
  2. OFLOCET [Concomitant]
     Route: 048
     Dates: start: 20060408, end: 20070405
  3. ZECLAR [Concomitant]
     Indication: MYCOBACTERIAL INFECTION
     Route: 048
     Dates: start: 20060408
  4. REYATAZ [Concomitant]
     Route: 048
     Dates: start: 20060408
  5. NORVIR [Concomitant]
     Route: 048
     Dates: start: 20060408
  6. SUSTIVA [Concomitant]
     Route: 048
     Dates: start: 20060408
  7. TRUVADA [Concomitant]
     Route: 048
     Dates: start: 20060408

REACTIONS (1)
  - UVEITIS [None]
